FAERS Safety Report 5595861-7 (Version None)
Quarter: 2008Q1

REPORT INFORMATION
  Report Type: 
  Country: None (occurrence: None)
  Receive Date: 20080118
  Receipt Date: 20080110
  Transmission Date: 20080703
  Serious: Yes (Hospitalization, Other)
  Sender: FDA-Public Use
  Company Number: US-MERCK-0711USA01271

PATIENT
  Age: 65 Year
  Sex: Female

DRUGS (4)
  1. FOSAMAX [Suspect]
     Route: 048
     Dates: start: 20000110, end: 20001101
  2. HORMONES (UNSPECIFIED) [Concomitant]
     Route: 065
     Dates: start: 19970201, end: 20060101
  3. [THERAPY UNSPECIFIED] [Concomitant]
     Route: 065
     Dates: start: 19970101
  4. [THERAPY UNSPECIFIED] [Concomitant]
     Route: 065
     Dates: start: 19990101

REACTIONS (24)
  - ARTHROPATHY [None]
  - ASTHMA [None]
  - AZOTAEMIA [None]
  - BACK DISORDER [None]
  - BREAST CANCER [None]
  - BRONCHITIS VIRAL [None]
  - CARDIAC FAILURE CONGESTIVE [None]
  - DEPRESSION [None]
  - DIABETES MELLITUS [None]
  - DIZZINESS [None]
  - FUNGAL INFECTION [None]
  - HERPES ZOSTER [None]
  - HYPOTENSION [None]
  - INFLUENZA [None]
  - JOINT DISLOCATION [None]
  - NAUSEA [None]
  - ORAL TORUS [None]
  - OSTEOMYELITIS [None]
  - PHARYNGITIS [None]
  - PHLEBITIS [None]
  - PYREXIA [None]
  - SEPSIS [None]
  - SINUSITIS [None]
  - VOMITING [None]
